FAERS Safety Report 5685569-1 (Version None)
Quarter: 2008Q1

REPORT INFORMATION
  Report Type: 
  Country: None (occurrence: None)
  Receive Date: 20080328
  Receipt Date: 20070816
  Transmission Date: 20080703
  Serious: No
  Sender: FDA-Public Use
  Company Number: US-BAYER-US-2007-030744

PATIENT
  Age: 27 Year
  Sex: Female
  Weight: 61 kg

DRUGS (2)
  1. MIRENA [Suspect]
     Route: 015
     Dates: start: 20070625, end: 20070828
  2. VITAMINS NOS [Concomitant]

REACTIONS (6)
  - CYST [None]
  - HEADACHE [None]
  - HOT FLUSH [None]
  - LIBIDO DECREASED [None]
  - MOOD SWINGS [None]
  - NAUSEA [None]
